FAERS Safety Report 14419639 (Version 1)
Quarter: 2018Q1

REPORT INFORMATION
  Report Type: Spontaneous
  Country: US (occurrence: US)
  Receive Date: 20180121
  Receipt Date: 20180121
  Transmission Date: 20180509
  Serious: Yes (Life-Threatening, Other)
  Sender: FDA-Public Use
  Company Number: None

PATIENT
  Age: 59 Year
  Sex: Female
  Weight: 90 kg

DRUGS (11)
  1. NEURONTIN [Suspect]
     Active Substance: GABAPENTIN
     Indication: PAIN
     Dosage: ?          QUANTITY:1 CAPSULE(S);?
     Route: 048
  2. OMEPRAZOLE. [Concomitant]
     Active Substance: OMEPRAZOLE
  3. CYMBALTA [Concomitant]
     Active Substance: DULOXETINE HYDROCHLORIDE
  4. METOPROLOL. [Concomitant]
     Active Substance: METOPROLOL
  5. NEURONTIN [Suspect]
     Active Substance: GABAPENTIN
     Indication: NEUROPATHY PERIPHERAL
     Dosage: ?          QUANTITY:1 CAPSULE(S);?
     Route: 048
  6. ROBINUL [Concomitant]
     Active Substance: GLYCOPYRROLATE
  7. LOSARTAN. [Concomitant]
     Active Substance: LOSARTAN
  8. IBUPROFEN. [Concomitant]
     Active Substance: IBUPROFEN
  9. LIPITOR [Concomitant]
     Active Substance: ATORVASTATIN CALCIUM
  10. METHOCARBAMOL. [Concomitant]
     Active Substance: METHOCARBAMOL
  11. OXYCODONE/APAP [Concomitant]
     Active Substance: ACETAMINOPHEN\OXYCODONE HYDROCHLORIDE

REACTIONS (4)
  - Oropharyngeal pain [None]
  - Stomatitis [None]
  - Dysphonia [None]
  - Tongue ulceration [None]

NARRATIVE: CASE EVENT DATE: 20180108
